FAERS Safety Report 5944111-8 (Version None)
Quarter: 2008Q4

REPORT INFORMATION
  Report Type: 
  Country: None (occurrence: None)
  Receive Date: 20081106
  Receipt Date: 20081030
  Transmission Date: 20090506
  Serious: Yes (Other)
  Sender: FDA-Public Use
  Company Number: US-AMGEN-US310544

PATIENT
  Sex: Male

DRUGS (18)
  1. ARANESP [Suspect]
     Indication: RENAL FAILURE CHRONIC
     Route: 065
     Dates: start: 20060707, end: 20080911
  2. ALLOPURINOL [Concomitant]
     Route: 048
     Dates: start: 20080528
  3. ZEMPLAR [Concomitant]
     Route: 042
     Dates: start: 20080917
  4. DILAUDID [Concomitant]
     Route: 048
     Dates: start: 20080821
  5. VENOFER [Concomitant]
  6. HEPARIN [Concomitant]
     Route: 042
     Dates: start: 20080719
  7. KAYEXALATE [Concomitant]
     Route: 048
  8. LABETALOL HYDROCHLORIDE [Concomitant]
     Route: 048
     Dates: start: 20080528
  9. LISINOPRIL [Concomitant]
     Route: 048
     Dates: start: 20080528
  10. COLCHICINE [Concomitant]
     Route: 048
     Dates: start: 20080528
  11. PROTONIX [Concomitant]
     Route: 048
     Dates: start: 20080528
  12. RENAGEL [Concomitant]
  13. TYLENOL W/ CODEINE NO. 3 [Concomitant]
     Dates: start: 20080418
  14. CLONIDINE [Concomitant]
     Route: 048
     Dates: start: 20080331
  15. NIFEDIPINE [Concomitant]
     Route: 048
     Dates: start: 20080331
  16. HYDRALAZINE HCL [Concomitant]
     Route: 048
     Dates: start: 20080331
  17. PLAVIX [Concomitant]
     Route: 048
     Dates: start: 20080331
  18. ZOCOR [Concomitant]
     Route: 048
     Dates: start: 20080331

REACTIONS (2)
  - HAEMOLYTIC ANAEMIA [None]
  - MYELODYSPLASTIC SYNDROME [None]
